FAERS Safety Report 7043850-8 (Version None)
Quarter: 2010Q4

REPORT INFORMATION
  Report Type: 
  Country: None (occurrence: None)
  Receive Date: 20101008
  Receipt Date: 20101008
  Transmission Date: 20110411
  Serious: No
  Sender: FDA-Public Use
  Company Number: None

PATIENT
  Age: 41 Year
  Sex: Male
  Weight: 103.4201 kg

DRUGS (1)
  1. ZICAM NASAL GEL UNSURE MATRIXX INITIATIVES [Suspect]
     Indication: NASOPHARYNGITIS
     Dosage: ONE SQUIRT NASAL
     Route: 045

REACTIONS (2)
  - DYSGEUSIA [None]
  - HYPOSMIA [None]
